FAERS Safety Report 10154757 (Version 1)
Quarter: 2014Q2

REPORT INFORMATION
  Report Type: Spontaneous
  Country: BD (occurrence: BD)
  Receive Date: 20140506
  Receipt Date: 20140506
  Transmission Date: 20141212
  Serious: Yes (Hospitalization)
  Sender: FDA-Public Use
  Company Number: BD-SA-2014SA057404

PATIENT
  Age: 28 Year
  Sex: Female

DRUGS (1)
  1. CHLOROQUINE (SALT NOT SPECIFIED) [Suspect]
     Indication: PRODUCT USED FOR UNKNOWN INDICATION
     Route: 065

REACTIONS (12)
  - Toxic epidermal necrolysis [Unknown]
  - Erythema [Unknown]
  - Body temperature increased [Unknown]
  - Tachycardia [Unknown]
  - Cough [Unknown]
  - Hypoproteinaemia [Unknown]
  - Alopecia [Recovered/Resolved]
  - Electrolyte imbalance [Unknown]
  - Blister [Unknown]
  - Mucosal erosion [Unknown]
  - Dehydration [Unknown]
  - Corneal opacity [Recovered/Resolved]
